FAERS Safety Report 9049417 (Version 3)
Quarter: 2013Q1

REPORT INFORMATION
  Report Type: Spontaneous
  Country: US (occurrence: US)
  Receive Date: 20130205
  Receipt Date: 20130225
  Transmission Date: 20140127
  Serious: Yes (Other)
  Sender: FDA-Public Use
  Company Number: US-JNJFOC-20130117044

PATIENT
  Sex: Female

DRUGS (4)
  1. REMICADE [Suspect]
     Indication: RHEUMATOID ARTHRITIS
     Dosage: 98 WEEKS, APPROXIMATELY 49 INFUSIONS, FROM THE AGE OF 70 YEARS
     Route: 042
     Dates: start: 20040728, end: 20120710
  2. IMURAN [Concomitant]
     Indication: RHEUMATOID ARTHRITIS
     Route: 048
     Dates: start: 20040729, end: 20120904
  3. METHOTREXATE [Concomitant]
     Indication: RHEUMATOID ARTHRITIS
     Route: 048
     Dates: start: 2003
  4. SULFASALAZINE [Concomitant]
     Indication: RHEUMATOID ARTHRITIS
     Route: 048
     Dates: start: 2003

REACTIONS (1)
  - Breast cancer [Recovering/Resolving]
